FAERS Safety Report 5531345-X (Version None)
Quarter: 2007Q4

REPORT INFORMATION
  Report Type: 
  Country: None (occurrence: None)
  Receive Date: 20071128
  Receipt Date: 20071113
  Transmission Date: 20080405
  Serious: Yes (Hospitalization)
  Sender: FDA-Public Use
  Company Number: 164235USA

PATIENT
  Age: 66 Year
  Sex: Female

DRUGS (7)
  1. FLUOROURACIL [Suspect]
     Indication: COLON CANCER METASTATIC
     Dosage: 675MG EVERY FOURTEEN DAYS; INTRAVENOUS
     Route: 042
     Dates: start: 20031105, end: 20031119
  2. FOLINIC ACID [Suspect]
     Indication: COLON CANCER METASTATIC
     Dosage: INTRAVENOUS
     Route: 042
     Dates: start: 20031105, end: 20031119
  3. IRINOTECAN HCL [Suspect]
     Indication: COLON CANCER
     Dosage: 300 MG, INTRAVENOUS
     Route: 042
     Dates: start: 20031105, end: 20031119
  4. PLACEBO [Suspect]
     Indication: COLON CANCER
     Dosage: 800 MG (5400 MG, 2 IN 1 D)
     Dates: start: 20031105, end: 20031119
  5. CYANOCOBALAMIN [Concomitant]
  6. MULTI-VITAMIN [Concomitant]
  7. TENORETIC 100 [Concomitant]

REACTIONS (3)
  - ABDOMINAL PAIN [None]
  - HAEMOGLOBIN DECREASED [None]
  - PYREXIA [None]
